FAERS Safety Report 9476817 (Version 1)
Quarter: 2013Q3

REPORT INFORMATION
  Report Type: Spontaneous
  Country: US (occurrence: US)
  Receive Date: 20130826
  Receipt Date: 20130826
  Transmission Date: 20140515
  Serious: No
  Sender: FDA-Public Use
  Company Number: US-TARO-2013P1006730

PATIENT
  Age: 78 Year
  Sex: Female
  Weight: 45.36 kg

DRUGS (4)
  1. CLOBETASOL PROPIONATE OINTMENT USP 0.05% [Suspect]
     Route: 061
     Dates: start: 201212
  2. ESTRACE CREAM, 0.01% [Suspect]
     Route: 061
  3. SERTRALINE [Suspect]
     Dates: start: 201303, end: 2013
  4. DILTIAZEM [Concomitant]

REACTIONS (8)
  - Vulvovaginal discomfort [Not Recovered/Not Resolved]
  - Urethral pain [Not Recovered/Not Resolved]
  - Vulvovaginal erythema [Not Recovered/Not Resolved]
  - Vulval disorder [Not Recovered/Not Resolved]
  - Herpes zoster [Not Recovered/Not Resolved]
  - Off label use [Not Recovered/Not Resolved]
  - Lichen planus [Not Recovered/Not Resolved]
  - Dysuria [Not Recovered/Not Resolved]
